FAERS Safety Report 6537537-5 (Version None)
Quarter: 2010Q1

REPORT INFORMATION
  Report Type: 
  Country: None (occurrence: None)
  Receive Date: 20100114
  Receipt Date: 20100104
  Transmission Date: 20100710
  Serious: Yes (Other)
  Sender: FDA-Public Use
  Company Number: US-ELI_LILLY_AND_COMPANY-US201001000415

PATIENT
  Age: 18 Year
  Sex: Female

DRUGS (5)
  1. PROZAC [Suspect]
     Indication: ANXIETY
     Dosage: 60 MG, DAILY (1/D)
     Route: 065
     Dates: start: 20080901, end: 20091027
  2. PROZAC [Suspect]
     Dosage: 80 MG, DAILY (1/D)
     Route: 065
     Dates: start: 20091027, end: 20091229
  3. LAMICTAL [Concomitant]
     Dosage: 200 MG, DAILY (1/D)
     Route: 065
  4. VYVANSE [Concomitant]
     Dosage: 30 MG, DAILY (1/D)
     Route: 065
  5. AXERT [Concomitant]
     Dosage: 12.5 MG, DAILY (1/D)
     Route: 065

REACTIONS (4)
  - ANXIETY [None]
  - DRUG LEVEL INCREASED [None]
  - MUSCULOSKELETAL PAIN [None]
  - OFF LABEL USE [None]
